FAERS Safety Report 12505203 (Version 1)
Quarter: 2016Q2

REPORT INFORMATION
  Report Type: Spontaneous
  Country: BR (occurrence: BR)
  Receive Date: 20160628
  Receipt Date: 20160628
  Transmission Date: 20160815
  Serious: Yes (Other)
  Sender: FDA-Public Use
  Company Number: BR-GLAXOSMITHKLINE-BR2016GSK091068

PATIENT
  Sex: Female
  Weight: 94 kg

DRUGS (2)
  1. SERETIDE [Suspect]
     Active Substance: FLUTICASONE PROPIONATE\SALMETEROL XINAFOATE
     Indication: ASTHMA
     Dosage: 2 DF, BID, APPLICATION(S), 50/250 MCG
  2. SERETIDE [Suspect]
     Active Substance: FLUTICASONE PROPIONATE\SALMETEROL XINAFOATE
     Indication: BRONCHITIS
     Dosage: UNK, 50/500 MCG

REACTIONS (7)
  - Inappropriate schedule of drug administration [Unknown]
  - Overdose [Not Recovered/Not Resolved]
  - Lower limb fracture [Unknown]
  - Swelling [Unknown]
  - Product quality issue [Unknown]
  - Condition aggravated [Not Recovered/Not Resolved]
  - Dyspnoea [Recovered/Resolved]
